FAERS Safety Report 9587602 (Version 3)
Quarter: 2013Q4

REPORT INFORMATION
  Report Type: Spontaneous
  Country: GB (occurrence: GB)
  Receive Date: 20131003
  Receipt Date: 20131018
  Transmission Date: 20140711
  Serious: Yes (Life-Threatening, Hospitalization, Other)
  Sender: FDA-Public Use
  Company Number: GB-ABBVIE-13P-167-1068140-00

PATIENT
  Age: 56 Year
  Sex: Female
  Weight: 45 kg

DRUGS (18)
  1. HUMIRA [Suspect]
     Indication: ANKYLOSING SPONDYLITIS
     Route: 058
     Dates: start: 200808, end: 201210
  2. HUMIRA [Suspect]
     Indication: SPONDYLOARTHROPATHY
  3. METHOTREXATE [Concomitant]
     Indication: ANKYLOSING SPONDYLITIS
     Route: 048
     Dates: start: 200403
  4. FOLIC ACID [Concomitant]
     Indication: ANKYLOSING SPONDYLITIS
     Route: 048
  5. DILTIAZEM [Concomitant]
     Indication: PRODUCT USED FOR UNKNOWN INDICATION
     Route: 048
  6. SIMVASTATIN [Concomitant]
     Indication: MYOCARDIAL INFARCTION
     Route: 048
     Dates: start: 201210
  7. SERTRALINE [Concomitant]
     Indication: PRODUCT USED FOR UNKNOWN INDICATION
     Route: 048
     Dates: start: 201210
  8. DEXAMETHASONE [Concomitant]
     Indication: PRODUCT USED FOR UNKNOWN INDICATION
     Route: 048
     Dates: start: 201210
  9. ASPIRIN [Concomitant]
     Indication: MYOCARDIAL INFARCTION
     Route: 048
     Dates: start: 201210
  10. CLOPIDROGEL SANDOZ [Concomitant]
     Indication: MYOCARDIAL INFARCTION
     Route: 048
     Dates: start: 201210
  11. SLOZEM [Concomitant]
     Dates: start: 201210
  12. ZEROCREAM [Concomitant]
     Dates: start: 201210
  13. ENSURE [Concomitant]
     Dates: start: 201210
  14. GLYCERYL TRINITRATE [Concomitant]
     Dates: start: 201210
  15. OMEPRAZOLE [Concomitant]
  16. ANUSOL [Concomitant]
  17. CALAMINE [Concomitant]
     Dates: start: 201210
  18. CO-DYDRAMOL 10MG/500MG [Concomitant]

REACTIONS (2)
  - Acute myocardial infarction [Unknown]
  - Glioblastoma multiforme [Not Recovered/Not Resolved]
